FAERS Safety Report 4786441-1 (Version None)
Quarter: 2005Q3

REPORT INFORMATION
  Report Type: 
  Country: None (occurrence: None)
  Receive Date: 20050927
  Receipt Date: 20050722
  Transmission Date: 20060218
  Serious: No
  Sender: FDA-Public Use
  Company Number: USA0507103534

PATIENT
  Age: 59 Year
  Sex: Male

DRUGS (5)
  1. STRATTERA [Suspect]
     Indication: ATTENTION DEFICIT/HYPERACTIVITY DISORDER
     Dosage: 40 MG DAY
     Dates: start: 20050721
  2. EFFEXOR [Concomitant]
  3. LEXAPRO [Concomitant]
  4. OXYCONTIN [Concomitant]
  5. OXYCODONE HCL [Concomitant]

REACTIONS (4)
  - DRY EYE [None]
  - EPISTAXIS [None]
  - STOMACH DISCOMFORT [None]
  - URINARY HESITATION [None]
